FAERS Safety Report 19129231 (Version 2)
Quarter: 2021Q2

REPORT INFORMATION
  Report Type: Spontaneous
  Country: SI (occurrence: SI)
  Receive Date: 20210413
  Receipt Date: 20210502
  Transmission Date: 20210717
  Serious: Yes (Other)
  Sender: FDA-Public Use
  Company Number: NVSC2021SI076250

PATIENT
  Age: 47 Year
  Sex: Female

DRUGS (4)
  1. RANITIDINE. [Suspect]
     Active Substance: RANITIDINE
     Indication: PRODUCT USED FOR UNKNOWN INDICATION
     Dosage: UNK
     Route: 065
  2. RYDAPT [Suspect]
     Active Substance: MIDOSTAURIN
     Dosage: 2X50 MG
     Route: 065
  3. RYDAPT [Suspect]
     Active Substance: MIDOSTAURIN
     Indication: SYSTEMIC MASTOCYTOSIS
     Dosage: 2X100
     Route: 065
  4. LENTRICA [Suspect]
     Active Substance: DESLORATADINE
     Indication: PRODUCT USED FOR UNKNOWN INDICATION
     Dosage: UNK
     Route: 065

REACTIONS (6)
  - Anaphylactic reaction [Unknown]
  - Systemic mastocytosis [Unknown]
  - Stress [Unknown]
  - Drug ineffective [Unknown]
  - Condition aggravated [Unknown]
  - Vomiting [Unknown]
